FAERS Safety Report 8271827-3 (Version None)
Quarter: 2012Q1

REPORT INFORMATION
  Report Type: 
  Country: None (occurrence: None)
  Receive Date: 20120312
  Receipt Date: 20111206
  Transmission Date: 20120608
  Serious: No
  Sender: FDA-Public Use
  Company Number: 2011SP057253

PATIENT
  Age: 42 Year
  Sex: Female

DRUGS (2)
  1. SAPHRIS [Suspect]
     Indication: SCHIZOAFFECTIVE DISORDER
  2. CALCIUM CARBONATE [Concomitant]

REACTIONS (1)
  - DYSPEPSIA [None]
